FAERS Safety Report 19165195 (Version 1)
Quarter: 2021Q2

REPORT INFORMATION
  Report Type: Spontaneous
  Country: IE (occurrence: IE)
  Receive Date: 20210421
  Receipt Date: 20210421
  Transmission Date: 20210717
  Serious: Yes (Other)
  Sender: FDA-Public Use
  Company Number: NVSC2020IE319892

PATIENT
  Age: 53 Year

DRUGS (1)
  1. ADALIMUMAB [Suspect]
     Active Substance: ADALIMUMAB
     Indication: SACROILIITIS
     Dosage: UNK
     Route: 065

REACTIONS (1)
  - Paradoxical psoriasis [Unknown]
